FAERS Safety Report 4486689-X (Version None)
Quarter: 2004Q4

REPORT INFORMATION
  Report Type: 
  Country: None (occurrence: None)
  Receive Date: 20041021
  Receipt Date: 20041008
  Transmission Date: 20050328
  Serious: Yes (Hospitalization, Other)
  Sender: FDA-Public Use
  Company Number: 2004238136US

PATIENT
  Age: 54 Year
  Sex: Female
  Weight: 93.4 kg

DRUGS (2)
  1. BEXTRA [Suspect]
     Indication: ARTHRITIS
     Dosage: 10 MG, QD, ORAL
     Route: 048
     Dates: start: 20040901, end: 20041008
  2. ZESTRIL [Concomitant]

REACTIONS (8)
  - CEREBROVASCULAR ACCIDENT [None]
  - CHEST PAIN [None]
  - DISORIENTATION [None]
  - EYE PAIN [None]
  - FACIAL PAIN [None]
  - HYPOAESTHESIA [None]
  - MUTISM [None]
  - PARAESTHESIA [None]
